FAERS Safety Report 6274332-9 (Version None)
Quarter: 2009Q3

REPORT INFORMATION
  Report Type: 
  Country: None (occurrence: None)
  Receive Date: 20090716
  Receipt Date: 20090630
  Transmission Date: 20100115
  Serious: Yes (Other)
  Sender: FDA-Public Use
  Company Number: 2009-1545

PATIENT
  Age: 55 Year
  Sex: Female

DRUGS (1)
  1. DYSPORT [Suspect]
     Dosage: (1000 (UNITS, SINGLE CYCLE THERAPY), INTRAMUSCULAR; SINGLE CYCLE THERAPIES
     Route: 030

REACTIONS (2)
  - DIPLOPIA [None]
  - DRUG TOXICITY [None]
